FAERS Safety Report 13438739 (Version 2)
Quarter: 2017Q3

REPORT INFORMATION
  Report Type: Spontaneous
  Country: US (occurrence: US)
  Receive Date: 20170412
  Receipt Date: 20170707
  Transmission Date: 20171127
  Serious: Yes (Hospitalization, Other)
  Sender: FDA-Public Use
  Company Number: US-ASTRAZENECA-2017SE36418

PATIENT
  Age: 26161 Day
  Sex: Male

DRUGS (1)
  1. SYMBICORT [Suspect]
     Active Substance: BUDESONIDE\FORMOTEROL FUMARATE DIHYDRATE
     Dosage: 160 MCG/4.5 MCG, UNKNOWN FREQUENCY UNKNOWN
     Route: 055

REACTIONS (4)
  - Fall [Unknown]
  - Cerebrovascular accident [Unknown]
  - Apparent death [Unknown]
  - Product quality issue [Unknown]

NARRATIVE: CASE EVENT DATE: 20170330
